FAERS Safety Report 24112485 (Version 1)
Quarter: 2024Q3

REPORT INFORMATION
  Report Type: Report from Study
  Country: US (occurrence: US)
  Receive Date: 20240719
  Receipt Date: 20240719
  Transmission Date: 20241017
  Serious: Yes (Other)
  Sender: ABBVIE
  Company Number: US-ABBVIE-5843535

PATIENT
  Sex: Male

DRUGS (3)
  1. SKYRIZI [Suspect]
     Active Substance: RISANKIZUMAB-RZAA
     Indication: Psoriatic arthropathy
     Dosage: FORM STRENGHT 150 MG WEEK 0
     Route: 058
     Dates: start: 20231221, end: 20231221
  2. SKYRIZI [Suspect]
     Active Substance: RISANKIZUMAB-RZAA
     Dosage: FORM STRENGHT 150 MG WEEK 4
     Route: 058
     Dates: start: 20240127, end: 20240127
  3. SKYRIZI [Suspect]
     Active Substance: RISANKIZUMAB-RZAA
     Dosage: FORM STRENGHT 150 MG
     Route: 058
     Dates: start: 20240712, end: 20240712

REACTIONS (4)
  - Carpal tunnel syndrome [Unknown]
  - Joint injury [Unknown]
  - Loss of personal independence in daily activities [Unknown]
  - Peripheral nerve injury [Unknown]
